FAERS Safety Report 23744655 (Version 1)
Quarter: 2024Q2

REPORT INFORMATION
  Report Type: Report from Study
  Country: US (occurrence: None)
  Receive Date: 20240415
  Receipt Date: 20240415
  Transmission Date: 20240716
  Serious: Yes (Death, Life-Threatening, Other)
  Sender: FDA-Public Use
  Company Number: 2020SF61643

PATIENT
  Age: 28913 Day
  Sex: Female
  Weight: 68.9 kg

DRUGS (9)
  1. BRILINTA [Suspect]
     Active Substance: TICAGRELOR
     Indication: Stent placement
     Route: 048
     Dates: start: 20191202
  2. CRESTOR [Suspect]
     Active Substance: ROSUVASTATIN CALCIUM
     Route: 048
  3. ASPIRIN [Concomitant]
     Active Substance: ASPIRIN
     Route: 048
  4. FISH OIL [Concomitant]
     Active Substance: FISH OIL
     Dosage: TAKE 2 TABLETS IN MORNING AND 1 AT NIGHT
  5. HUMALOG [Concomitant]
     Active Substance: INSULIN LISPRO
     Indication: Diabetes mellitus
     Dosage: 100 UNIT/ML, INJECT BY SUBCUTANEOUS ROUTE PER PRESCRIBER^S INSTRUCTIONS. INSULIN DOSING REQUIRES ...
     Route: 058
  6. LASIX [Concomitant]
     Active Substance: FUROSEMIDE
     Indication: Hypertension
     Route: 048
  7. PRAVASTATIN [Concomitant]
     Active Substance: PRAVASTATIN
     Route: 048
  8. NITROFURANTOIN MONOHYDRATE MACROCRYSTALS [Concomitant]
     Active Substance: NITROFURANTOIN\NITROFURANTOIN MONOHYDRATE
     Dosage: TAKE 1 CAPSULE BY ORAL ROUTE EVERY 12 HOURS WITH FOOD
     Route: 048
  9. BAYER BACK AND BODY EXTRA STRENGTH [Concomitant]
     Active Substance: ASPIRIN\CAFFEINE
     Dosage: 500 MG-32.5 MG, TAKE 2 TABS WHEN NEEDED PRN

REACTIONS (4)
  - Oesophageal carcinoma [Fatal]
  - Arteriosclerosis coronary artery [Unknown]
  - Weight decreased [Unknown]
  - Drug intolerance [Unknown]

NARRATIVE: CASE EVENT DATE: 20201015
